FAERS Safety Report 5898916-2 (Version None)
Quarter: 2008Q3

REPORT INFORMATION
  Report Type: 
  Country: None (occurrence: None)
  Receive Date: 20080925
  Receipt Date: 20080919
  Transmission Date: 20090109
  Serious: Yes (Hospitalization)
  Sender: FDA-Public Use
  Company Number: GB-PFIZER INC-2008080048

PATIENT
  Age: 49 Year
  Sex: Female

DRUGS (6)
  1. PREDNISOLONE [Suspect]
     Indication: POLYARTHRITIS
     Route: 048
  2. METHOTREXATE [Suspect]
     Indication: POLYARTHRITIS
     Dosage: FREQ:DAILY
  3. INFLIXIMAB [Suspect]
     Indication: POLYARTHRITIS
     Route: 042
  4. ETANERCEPT [Concomitant]
  5. LEFLUNOMIDE [Concomitant]
  6. SULFASALAZINE [Concomitant]

REACTIONS (2)
  - HERPES SIMPLEX [None]
  - MOUTH ULCERATION [None]
